FAERS Safety Report 8131332-1 (Version None)
Quarter: 2012Q1

REPORT INFORMATION
  Report Type: 
  Country: None (occurrence: None)
  Receive Date: 20120213
  Receipt Date: 20120203
  Transmission Date: 20120608
  Serious: Yes (Hospitalization)
  Sender: FDA-Public Use
  Company Number: FR-BRISTOL-MYERS SQUIBB COMPANY-16154536

PATIENT
  Age: 30 Year
  Sex: Female

DRUGS (3)
  1. ABILIFY [Suspect]
     Indication: BORDERLINE PERSONALITY DISORDER
     Dosage: 10 MG IN THE MORNING AND 10 IN THE EVENING
     Route: 048
     Dates: start: 20110821
  2. OXAZEPAM [Concomitant]
     Route: 048
     Dates: start: 20110101
  3. TERCIAN [Concomitant]
     Dosage: SINCE THE BEGINNING OF 2011
     Route: 048
     Dates: start: 20110101

REACTIONS (1)
  - ISCHAEMIC STROKE [None]
